FAERS Safety Report 23648290 (Version 1)
Quarter: 2024Q1

REPORT INFORMATION
  Report Type: Spontaneous
  Country: FR (occurrence: FR)
  Receive Date: 20240319
  Receipt Date: 20240319
  Transmission Date: 20240409
  Serious: Yes (Life-Threatening, Hospitalization)
  Sender: FDA-Public Use
  Company Number: None

PATIENT
  Age: 59 Year
  Sex: Female
  Weight: 54 kg

DRUGS (12)
  1. MYFORTIC [Suspect]
     Active Substance: MYCOPHENOLATE SODIUM
     Indication: Product used for unknown indication
     Dosage: 720 MG, Q12H
     Route: 048
     Dates: end: 20240212
  2. FILGRASTIM [Concomitant]
     Active Substance: FILGRASTIM
     Indication: Neutropenia
     Dosage: LE MERCREDI, ( 48 MU/0,5 ML, SOLUTION INJECTABLE OU POUR PERFUSION EN SERINGUE PR?-REMPLIE)
     Route: 051
  3. CALCIUM PHOSPHATE, DIBASIC, ANHYDROUS\MAGNESIUM GLYCEROPHOSPHATE\PHOSP [Concomitant]
     Active Substance: CALCIUM PHOSPHATE, DIBASIC, ANHYDROUS\MAGNESIUM GLYCEROPHOSPHATE\PHOSPHORIC ACID\SODIUM PHOSPHATE, D
     Indication: Mineral supplementation
     Dosage: 20 DRP, Q12H, (SOLUTION BUVABLE EN GOUTTES)
     Route: 048
  4. TACROLIMUS [Concomitant]
     Active Substance: TACROLIMUS
     Indication: Organ transplant
     Dosage: 1.5 MG, Q12H
     Route: 048
  5. DOLIPRANE [Concomitant]
     Active Substance: ACETAMINOPHEN
     Indication: Pain
     Dosage: 1000 MG, (1000 MG, COMPRIM?)
     Route: 048
  6. METOCLOPRAMIDE [Concomitant]
     Active Substance: METOCLOPRAMIDE
     Indication: Vomiting
     Dosage: 10 MG
     Route: 065
  7. POTASSIUM CHLORIDE [Concomitant]
     Active Substance: POTASSIUM CHLORIDE
     Indication: Hypokalaemia
     Dosage: 3 DOSAGE FORM, QD, (G?LULE  )
     Route: 048
  8. ZITHROMAX [Concomitant]
     Active Substance: AZITHROMYCIN DIHYDRATE
     Indication: Infection prophylaxis
     Dosage: 250 MG, QD, ( 250 MG, COMPRIM? PELLICUL?)
     Route: 048
  9. CRESEMBA [Concomitant]
     Active Substance: ISAVUCONAZONIUM SULFATE
     Indication: Infection prophylaxis
     Dosage: 200 MG, QD, (200 MG, POUDRE POUR SOLUTION ? DILUER POUR PERFUSION)
     Route: 065
  10. TRAMADOL HYDROCHLORIDE [Concomitant]
     Active Substance: TRAMADOL HYDROCHLORIDE
     Indication: Pain
     Dosage: 100 MG, Q8H, (50 MG, G?LULE)
     Route: 048
  11. SOLUPRED [Concomitant]
     Indication: Organ transplant
     Dosage: 20 MG, QD, (20 MG, COMPRIM? ORODISPERSIBLE)
     Route: 048
  12. EBASTINE [Concomitant]
     Active Substance: EBASTINE
     Indication: Allergy prophylaxis
     Dosage: 5 MG, QD, (5 MG, COMPRIM? ORODISPERSIBLE)
     Route: 048

REACTIONS (1)
  - Acute respiratory failure [Not Recovered/Not Resolved]

NARRATIVE: CASE EVENT DATE: 20240209
